FAERS Safety Report 19016365 (Version 3)
Quarter: 2021Q2

REPORT INFORMATION
  Report Type: Report from Study
  Country: BR (occurrence: BR)
  Receive Date: 20210316
  Receipt Date: 20210428
  Transmission Date: 20210717
  Serious: Yes (Life-Threatening, Other)
  Sender: FDA-Public Use
  Company Number: NVSC2021BR059689

PATIENT
  Age: 64 Year
  Sex: Female

DRUGS (3)
  1. GILENYA [Suspect]
     Active Substance: FINGOLIMOD HYDROCHLORIDE
     Dosage: 0.5 MG
     Route: 065
     Dates: start: 2014
  2. GILENYA [Suspect]
     Active Substance: FINGOLIMOD HYDROCHLORIDE
     Indication: MULTIPLE SCLEROSIS
     Dosage: 0.5 MG
     Route: 065
     Dates: start: 2014, end: 2019
  3. FINGOLIMOD HYDROCHLORIDE [Concomitant]
     Active Substance: FINGOLIMOD HYDROCHLORIDE
     Indication: MULTIPLE SCLEROSIS
     Dosage: UNK
     Route: 065

REACTIONS (37)
  - Leukaemia [Unknown]
  - Facial pain [Not Recovered/Not Resolved]
  - Retching [Recovered/Resolved]
  - Nervousness [Unknown]
  - Irritability [Unknown]
  - Leukopenia [Unknown]
  - Dizziness [Recovered/Resolved]
  - Hypokinesia [Recovered/Resolved]
  - Unevaluable event [Unknown]
  - Anxiety [Unknown]
  - Condition aggravated [Unknown]
  - Headache [Recovered/Resolved]
  - Asthenia [Unknown]
  - Anaemia [Unknown]
  - Malaise [Unknown]
  - Arthralgia [Recovered/Resolved]
  - Product dose omission issue [Unknown]
  - Loss of consciousness [Recovered/Resolved]
  - Syncope [Recovered/Resolved]
  - Vomiting [Recovered/Resolved]
  - Aphasia [Recovered/Resolved]
  - Hypoaesthesia [Not Recovered/Not Resolved]
  - Visual impairment [Unknown]
  - Feeling abnormal [Recovered/Resolved]
  - Pain in extremity [Unknown]
  - Tremor [Recovered/Resolved]
  - Neck pain [Recovered/Resolved]
  - Decreased immune responsiveness [Unknown]
  - Confusional state [Unknown]
  - Fear [Unknown]
  - Muscle spasms [Unknown]
  - Anger [Unknown]
  - Malaise [Recovered/Resolved]
  - Nausea [Recovered/Resolved]
  - Trigeminal neuralgia [Not Recovered/Not Resolved]
  - Lymphopenia [Unknown]
  - Product availability issue [Unknown]

NARRATIVE: CASE EVENT DATE: 2019
